FAERS Safety Report 6792536-3 (Version None)
Quarter: 2010Q2

REPORT INFORMATION
  Report Type: 
  Country: None (occurrence: None)
  Receive Date: 20100624
  Receipt Date: 20080812
  Transmission Date: 20101027
  Serious: No
  Sender: FDA-Public Use
  Company Number: US-PFIZER INC-2008067998

PATIENT
  Age: 61 Year
  Sex: Female
  Weight: 61.8 kg

DRUGS (7)
  1. GEODON [Suspect]
     Indication: ANXIETY
     Dates: start: 20070101
  2. GEODON [Suspect]
     Indication: DEPRESSION
  3. GEODON [Suspect]
     Indication: THINKING ABNORMAL
  4. DRUG, UNSPECIFIED [Suspect]
  5. LUVOX [Concomitant]
  6. KLONOPIN [Concomitant]
  7. ENALAPRIL MALEATE [Concomitant]

REACTIONS (2)
  - CAROTENE INCREASED [None]
  - CONSTIPATION [None]
